FAERS Safety Report 8000203-3 (Version None)
Quarter: 2011Q4

REPORT INFORMATION
  Report Type: 
  Country: None (occurrence: None)
  Receive Date: 20111220
  Receipt Date: 20111220
  Transmission Date: 20120403
  Serious: Yes (Other)
  Sender: FDA-Public Use
  Company Number: None

PATIENT
  Age: 62 Year
  Sex: Male
  Weight: 80.7403 kg

DRUGS (2)
  1. RIBAVIRIN [Suspect]
     Dosage: TWICE DAILY
  2. PEGASYS [Suspect]
     Indication: HEPATITIS C
     Dosage: QWEEKLY
     Dates: start: 20111013, end: 20111111

REACTIONS (2)
  - LOCAL SWELLING [None]
  - BLISTER [None]
